FAERS Safety Report 8621768-4 (Version None)
Quarter: 2012Q3

REPORT INFORMATION
  Report Type: 
  Country: None (occurrence: None)
  Receive Date: 20120821
  Receipt Date: 20120821
  Transmission Date: 20120928
  Serious: Yes (Other)
  Sender: FDA-Public Use
  Company Number: None

PATIENT
  Sex: Male

DRUGS (6)
  1. JANUVIA [Concomitant]
  2. RIBAVIRIN [Suspect]
  3. PEGASYS [Suspect]
     Indication: HEPATITIS C
     Dates: start: 20120522, end: 20120810
  4. GLIMEPIRIDE [Concomitant]
  5. LEVOTHROID [Concomitant]
  6. LISINOPRIL [Concomitant]

REACTIONS (1)
  - INTRAOCULAR PRESSURE INCREASED [None]
